FAERS Safety Report 18582650 (Version 2)
Quarter: 2021Q1

REPORT INFORMATION
  Report Type: Spontaneous
  Country: US (occurrence: US)
  Receive Date: 20201205
  Receipt Date: 20210201
  Transmission Date: 20210419
  Serious: No
  Sender: FDA-Public Use
  Company Number: NVSC2020US323379

PATIENT
  Sex: Female

DRUGS (2)
  1. XIIDRA [Suspect]
     Active Substance: LIFITEGRAST
     Indication: PRODUCT USED FOR UNKNOWN INDICATION
     Dosage: 1 DRP, BID
     Route: 047
  2. RESTASIS [Suspect]
     Active Substance: CYCLOSPORINE
     Indication: DRY EYE
     Dosage: 2 DRP, BID (2 GTT,)GHTT,
     Route: 047
     Dates: end: 202011

REACTIONS (5)
  - Accidental exposure to product [Unknown]
  - Product use complaint [Unknown]
  - Eye irritation [Recovered/Resolved]
  - Dysgeusia [Unknown]
  - Multiple use of single-use product [Unknown]
